FAERS Safety Report 11590549 (Version 4)
Quarter: 2016Q1

REPORT INFORMATION
  Report Type: Spontaneous
  Country: US (occurrence: US)
  Receive Date: 20151002
  Receipt Date: 20160106
  Transmission Date: 20160525
  Serious: Yes (Hospitalization, Other)
  Sender: FDA-Public Use
  Company Number: US-GLAXOSMITHKLINE-US2015GSK139594

PATIENT
  Sex: Female
  Weight: 73.47 kg

DRUGS (1)
  1. SEREVENT DISKUS [Suspect]
     Active Substance: SALMETEROL XINAFOATE
     Indication: CHRONIC OBSTRUCTIVE PULMONARY DISEASE
     Dosage: UNK, BID
     Dates: start: 2008, end: 2015

REACTIONS (3)
  - Chronic obstructive pulmonary disease [Unknown]
  - Hospitalisation [Not Recovered/Not Resolved]
  - Drug ineffective [Unknown]
